FAERS Safety Report 12786050 (Version 1)
Quarter: 2016Q3

REPORT INFORMATION
  Report Type: Spontaneous
  Country: TR (occurrence: TR)
  Receive Date: 20160927
  Receipt Date: 20160927
  Transmission Date: 20161109
  Serious: Yes (Other)
  Sender: FDA-Public Use
  Company Number: TR-BAXALTA-2016BLT006898

PATIENT
  Age: 2 Year
  Sex: Male
  Weight: 12 kg

DRUGS (1)
  1. KIOVIG [Suspect]
     Active Substance: HUMAN IMMUNOGLOBULIN G
     Indication: IMMUNOGLOBULINS
     Dosage: 2 G RECEIVED, ONCE
     Route: 042
     Dates: start: 20160817, end: 20160817

REACTIONS (1)
  - Angioedema [Recovered/Resolved]

NARRATIVE: CASE EVENT DATE: 20160817
